FAERS Safety Report 18928500 (Version 2)
Quarter: 2022Q2

REPORT INFORMATION
  Report Type: Spontaneous
  Country: NZ (occurrence: NZ)
  Receive Date: 20210223
  Receipt Date: 20220607
  Transmission Date: 20220721
  Serious: Yes (Other)
  Sender: FDA-Public Use
  Company Number: NZ-PFIZER INC-2021145220

PATIENT
  Sex: Female

DRUGS (1)
  1. IBRANCE [Suspect]
     Active Substance: PALBOCICLIB
     Indication: Breast cancer
     Dosage: UNK

REACTIONS (6)
  - Seizure [Unknown]
  - Femur fracture [Unknown]
  - Fall [Unknown]
  - Fatigue [Unknown]
  - Feeling abnormal [Unknown]
  - Neoplasm progression [Unknown]
